FAERS Safety Report 23286534 (Version 2)
Quarter: 2024Q1

REPORT INFORMATION
  Report Type: Spontaneous
  Country: US (occurrence: US)
  Receive Date: 20231212
  Receipt Date: 20240110
  Transmission Date: 20240410
  Serious: No
  Sender: FDA-Public Use
  Company Number: US-ALK-ABELLO A/S-2023AA004086

PATIENT

DRUGS (16)
  1. ULMUS AMERICANA POLLEN [Suspect]
     Active Substance: ULMUS AMERICANA POLLEN
     Indication: Product used for unknown indication
     Dosage: UNKNOWN
     Route: 060
  2. PHLEUM PRATENSE POLLEN [Suspect]
     Active Substance: PHLEUM PRATENSE POLLEN
     Indication: Product used for unknown indication
     Dosage: UNKNOWN
     Route: 060
  3. LIQUIDAMBAR STYRACIFLUA POLLEN [Suspect]
     Active Substance: LIQUIDAMBAR STYRACIFLUA POLLEN
     Indication: Product used for unknown indication
     Dosage: UNKNOWN
     Route: 060
  4. BETULA PENDULA POLLEN [Suspect]
     Active Substance: BETULA PENDULA POLLEN
     Indication: Product used for unknown indication
     Dosage: UNKNOWN
     Route: 060
  5. JUNIPERUS VIRGINIANA POLLEN [Suspect]
     Active Substance: JUNIPERUS VIRGINIANA POLLEN
     Indication: Product used for unknown indication
     Dosage: UNKNOWN
     Route: 060
  6. POPULUS DELTOIDES POLLEN [Suspect]
     Active Substance: POPULUS DELTOIDES POLLEN
     Indication: Product used for unknown indication
     Dosage: UNKNOWN
     Route: 060
  7. QUERCUS ALBA POLLEN [Suspect]
     Active Substance: QUERCUS ALBA POLLEN
     Indication: Product used for unknown indication
     Dosage: UNKNOWN
     Route: 060
  8. CARYA ILLINOINENSIS POLLEN [Suspect]
     Active Substance: CARYA ILLINOINENSIS POLLEN
     Indication: Product used for unknown indication
     Dosage: UNKNOWN
     Route: 060
  9. AMARANTHUS RETROFLEXUS POLLEN [Suspect]
     Active Substance: AMARANTHUS RETROFLEXUS POLLEN
     Indication: Product used for unknown indication
     Route: 060
  10. MUS MUSCULUS SKIN [Suspect]
     Active Substance: MUS MUSCULUS SKIN
     Indication: Product used for unknown indication
     Dosage: UNKNOWN
     Route: 060
  11. FELIS CATUS HAIR [Suspect]
     Active Substance: FELIS CATUS HAIR
     Indication: Product used for unknown indication
     Dosage: UNKNOWN
     Route: 060
  12. CANIS LUPUS FAMILIARIS SKIN [Suspect]
     Active Substance: CANIS LUPUS FAMILIARIS SKIN
     Indication: Product used for unknown indication
     Dosage: UNKNOWN
     Route: 060
  13. GLYCERIN [Suspect]
     Active Substance: GLYCERIN
     Indication: Product used for unknown indication
     Dosage: UNKNOWN
     Route: 060
  14. ALLERGENIC EXTRACTS [Suspect]
     Active Substance: ALLERGENIC EXTRACTS
     Indication: Product used for unknown indication
     Route: 060
  15. ZYRTEC [Concomitant]
     Active Substance: CETIRIZINE HYDROCHLORIDE
     Indication: Product used for unknown indication
  16. FLONASE ALLERGY RELIEF [Concomitant]
     Active Substance: FLUTICASONE PROPIONATE
     Indication: Product used for unknown indication

REACTIONS (6)
  - Hypersensitivity [Unknown]
  - Local reaction [Unknown]
  - Tic [Unknown]
  - Rhinorrhoea [Unknown]
  - Incorrect route of product administration [Unknown]
  - Off label use [Unknown]
